FAERS Safety Report 7310096-5 (Version None)
Quarter: 2011Q1

REPORT INFORMATION
  Report Type: 
  Country: None (occurrence: None)
  Receive Date: 20110224
  Receipt Date: 20110128
  Transmission Date: 20110831
  Serious: No
  Sender: FDA-Public Use
  Company Number: US-B.I. PHARMACEUTICALS,INC./RIDGEFIELD-2010-BP-12675BP

PATIENT
  Sex: Female

DRUGS (15)
  1. COZAAR [Concomitant]
     Indication: HYPERTENSION
     Dosage: 50 MG
     Route: 048
  2. LEXAPRO [Concomitant]
     Indication: BIPOLAR DISORDER
     Dosage: 10 MG
     Route: 048
  3. SPIRIVA [Suspect]
     Indication: CHRONIC OBSTRUCTIVE PULMONARY DISEASE
     Dosage: 18 MCG
     Route: 055
     Dates: start: 20101031
  4. ALDACTONE [Concomitant]
     Indication: HYPERTENSION
     Dosage: 50 MG
     Route: 048
  5. LORAZEPAM [Concomitant]
     Route: 048
  6. DIVALPROEX SOD [Concomitant]
     Dosage: 250 MG
     Route: 048
  7. TENORMIN [Concomitant]
     Indication: HYPERTENSION
     Dosage: 100 MG
     Route: 048
  8. ALPRAZOLAM [Concomitant]
     Dosage: 1 MG
     Route: 048
  9. ASA [Concomitant]
     Indication: PROPHYLAXIS
     Dosage: 81 MG
     Route: 048
  10. ALBUTEROL [Concomitant]
     Indication: CHRONIC OBSTRUCTIVE PULMONARY DISEASE
     Route: 055
  11. PROVENTIL [Concomitant]
     Route: 055
  12. SPIRIVA [Suspect]
     Indication: EMPHYSEMA
  13. DEPAKOTE [Concomitant]
     Indication: BIPOLAR DISORDER
     Route: 048
  14. RANITIDINE [Concomitant]
     Indication: GASTROOESOPHAGEAL REFLUX DISEASE
     Dosage: 300 NR
     Route: 048
  15. MIRAPEX [Concomitant]
     Indication: RESTLESS LEGS SYNDROME
     Dosage: 0.25 MG
     Route: 048

REACTIONS (6)
  - DRY MOUTH [None]
  - CHOKING [None]
  - RASH [None]
  - COUGH [None]
  - DYSPHONIA [None]
  - DISSOCIATION [None]
